FAERS Safety Report 7432557-0 (Version None)
Quarter: 2011Q2

REPORT INFORMATION
  Report Type: 
  Country: None (occurrence: None)
  Receive Date: 20110422
  Receipt Date: 20110411
  Transmission Date: 20111010
  Serious: Yes (Death, Hospitalization, Other)
  Sender: FDA-Public Use
  Company Number: US-CELGENEUS-163-21880-10112386

PATIENT
  Sex: Male

DRUGS (8)
  1. REVLIMID [Suspect]
     Indication: MULTIPLE MYELOMA
     Dosage: 15 MILLIGRAM
     Route: 048
     Dates: start: 20091001, end: 20101201
  2. ASPIRIN [Concomitant]
     Dosage: 81 MILLIGRAM
     Route: 065
  3. VELCADE [Concomitant]
     Route: 065
  4. METFORMIN [Concomitant]
     Route: 065
  5. BENICAR [Concomitant]
     Route: 065
  6. LIPITOR [Concomitant]
     Route: 065
  7. SYNTHROID [Concomitant]
     Route: 065
  8. DEXAMETHASONE [Concomitant]
     Dosage: 4 MILLIGRAM
     Route: 048

REACTIONS (5)
  - DISEASE PROGRESSION [None]
  - RENAL FAILURE [None]
  - NEUTROPENIA [None]
  - FAILURE TO THRIVE [None]
  - MULTIPLE MYELOMA [None]
